FAERS Safety Report 25854481 (Version 1)
Quarter: 2025Q3

REPORT INFORMATION
  Report Type: Spontaneous
  Country: CN (occurrence: CN)
  Receive Date: 20250927
  Receipt Date: 20250927
  Transmission Date: 20251020
  Serious: Yes (Hospitalization, Other)
  Sender: MICRO LABS
  Company Number: CN-862174955-ML2025-04870

PATIENT
  Age: 52 Year
  Sex: Male

DRUGS (1)
  1. DEXAMETHASONE [Suspect]
     Active Substance: DEXAMETHASONE
     Indication: Psoriasis
     Route: 030

REACTIONS (3)
  - Adrenocortical insufficiency acute [Recovered/Resolved]
  - Adrenal insufficiency [Recovered/Resolved]
  - Product use issue [Unknown]
